FAERS Safety Report 4633230-4 (Version None)
Quarter: 2005Q2

REPORT INFORMATION
  Report Type: 
  Country: None (occurrence: None)
  Receive Date: 20050412
  Receipt Date: 20050412
  Transmission Date: 20051028
  Serious: Yes (Life-Threatening, Hospitalization)
  Sender: FDA-Public Use
  Company Number: None

PATIENT
  Age: 66 Year
  Sex: Male
  Weight: 91.6 kg

DRUGS (19)
  1. LISINOPRIL [Suspect]
  2. RISPERIDONE [Concomitant]
  3. FELODIPINE [Concomitant]
  4. METOPROLOL TARTRATE [Concomitant]
  5. TERAZOSIN HCL [Concomitant]
  6. SILDENAFIL [Concomitant]
  7. TEMAZEPAM [Concomitant]
  8. GABAPENTIN [Concomitant]
  9. NAPROXEN [Concomitant]
  10. TERAZOSIN HCL [Concomitant]
  11. DOCUSATE [Concomitant]
  12. MORPHINE SULFATE [Concomitant]
  13. MIRTAZAPINE [Concomitant]
  14. RANITIDINE [Concomitant]
  15. CLOPIDOGREL [Concomitant]
  16. IBUPROFEN [Concomitant]
  17. FLUNISOLIDE [Concomitant]
  18. ASPIRIN [Concomitant]
  19. MULTIVITAMIN WITH MINERALS [Concomitant]

REACTIONS (1)
  - ANGIONEUROTIC OEDEMA [None]
